FAERS Safety Report 7116883-0 (Version None)
Quarter: 2010Q4

REPORT INFORMATION
  Report Type: 
  Country: None (occurrence: None)
  Receive Date: 20101122
  Receipt Date: 20101116
  Transmission Date: 20110411
  Serious: Yes (Hospitalization, Other)
  Sender: FDA-Public Use
  Company Number: US-ROXANE LABORATORIES, INC.-2010-RO-01509RO

PATIENT
  Age: 29 Year
  Sex: Female
  Weight: 73 kg

DRUGS (10)
  1. TOPIRAMATE [Suspect]
     Indication: MIGRAINE
     Dosage: 50 MG
     Route: 048
  2. TOPIRAMATE [Suspect]
     Dosage: 100 MG
     Route: 048
  3. LORAZEPAM [Suspect]
     Route: 048
  4. FLUOXETINE [Suspect]
     Dosage: 10 MG
     Route: 048
  5. BACLOFEN [Suspect]
     Dosage: 420 MCG
     Route: 037
  6. POLYETHYLENE-GLYCOL 3350 [Suspect]
     Dosage: 17 G
     Route: 048
  7. BISACODYL [Suspect]
     Dosage: 10 MG
     Route: 054
  8. SUMATRIPTAN [Suspect]
     Route: 055
  9. PROMETHAZINE [Suspect]
     Route: 054
  10. ACETAMINOPHEN [Suspect]
     Route: 054

REACTIONS (7)
  - BACK PAIN [None]
  - CATATONIA [None]
  - DEHYDRATION [None]
  - MIGRAINE [None]
  - MYOCLONUS [None]
  - PSYCHOTIC DISORDER [None]
  - PYREXIA [None]
